FAERS Safety Report 8210327-3 (Version None)
Quarter: 2012Q1

REPORT INFORMATION
  Report Type: 
  Country: None (occurrence: None)
  Receive Date: 20120314
  Receipt Date: 20120301
  Transmission Date: 20120608
  Serious: Yes (Hospitalization)
  Sender: FDA-Public Use
  Company Number: GB-ROCHE-1045675

PATIENT
  Sex: Female

DRUGS (13)
  1. INFUMORPH [Concomitant]
  2. METFORMIN [Concomitant]
  3. CITALOPRAM HYDROBROMIDE [Concomitant]
  4. HYOSCINE PATCH [Concomitant]
  5. LANSOPRAZOLE [Concomitant]
  6. PREDNISOLONE [Concomitant]
  7. FENTANYL-100 [Concomitant]
  8. HALOPERIDOL [Concomitant]
  9. BISOPROLOL FUMARATE [Concomitant]
  10. ORAMORPH SR [Concomitant]
  11. MABTHERA [Suspect]
     Indication: RHEUMATOID ARTHRITIS
     Dates: start: 20100114
  12. RISEDRONATE SODIUM [Concomitant]
  13. BUMETANIDE [Concomitant]

REACTIONS (6)
  - MOBILITY DECREASED [None]
  - FATIGUE [None]
  - VOMITING [None]
  - DYSPNOEA [None]
  - INTERSTITIAL LUNG DISEASE [None]
  - NAUSEA [None]
